FAERS Safety Report 7280503-5 (Version None)
Quarter: 2011Q1

REPORT INFORMATION
  Report Type: 
  Country: None (occurrence: None)
  Receive Date: 20110208
  Receipt Date: 20110127
  Transmission Date: 20110831
  Serious: Yes (Hospitalization)
  Sender: FDA-Public Use
  Company Number: PHHY2011FR06307

PATIENT
  Sex: Female

DRUGS (9)
  1. AMIKACIN [Concomitant]
     Dosage: 500 MG
     Route: 042
     Dates: start: 20110101, end: 20110101
  2. MEROPENEM [Concomitant]
     Dosage: UNK
     Dates: start: 20110101, end: 20110104
  3. SECTRAL [Concomitant]
     Indication: HYPERTENSION
     Dosage: UNK
     Dates: start: 20020101
  4. MORPHINE SULFATE [Suspect]
     Dates: start: 20101231, end: 20110104
  5. VANCOMYCIN SANDOZ [Suspect]
     Dosage: 1.5 G
     Route: 042
     Dates: start: 20110102, end: 20110102
  6. RAMIPRIL [Concomitant]
     Indication: HYPERTENSION
     Dosage: UNK
     Dates: start: 20020101
  7. LANTUS [Concomitant]
     Indication: TYPE 2 DIABETES MELLITUS
  8. HYDREA [Concomitant]
     Indication: POLYCYTHAEMIA VERA
     Dosage: 500 MG, UNK
     Dates: start: 20010101
  9. VANCOMYCIN SANDOZ [Suspect]
     Dosage: 2.5 G
     Route: 042
     Dates: start: 20110101, end: 20110101

REACTIONS (8)
  - RENAL TUBULAR NECROSIS [None]
  - MIOSIS [None]
  - RENAL FAILURE ACUTE [None]
  - OVERDOSE [None]
  - DIARRHOEA [None]
  - SOMNOLENCE [None]
  - WEIGHT DECREASED [None]
  - AGITATION [None]
